FAERS Safety Report 6578288-0 (Version None)
Quarter: 2010Q1

REPORT INFORMATION
  Report Type: 
  Country: None (occurrence: None)
  Receive Date: 20100211
  Receipt Date: 20100205
  Transmission Date: 20100710
  Serious: Yes (Hospitalization)
  Sender: FDA-Public Use
  Company Number: B0631439B

PATIENT
  Weight: 0.9 kg

DRUGS (4)
  1. TELZIR [Suspect]
     Dosage: 2TAB PER DAY
     Dates: start: 20090920
  2. COMBIVIR [Suspect]
  3. NORVIR [Suspect]
  4. KALETRA [Suspect]
     Dates: start: 20090901, end: 20090901

REACTIONS (2)
  - DRUG EXPOSURE DURING PREGNANCY [None]
  - FOETAL GROWTH RETARDATION [None]
